FAERS Safety Report 7100955-0 (Version None)
Quarter: 2010Q4

REPORT INFORMATION
  Report Type: 
  Country: None (occurrence: None)
  Receive Date: 20101113
  Receipt Date: 20100414
  Transmission Date: 20110411
  Serious: No
  Sender: FDA-Public Use
  Company Number: US-ALLERGAN-1004124US

PATIENT
  Age: 58 Year
  Sex: Female

DRUGS (2)
  1. BOTOX COSMETIC [Suspect]
     Indication: SKIN WRINKLING
     Dosage: 54 UNITS, UNK
     Dates: start: 20100116, end: 20100116
  2. DIOVAN [Concomitant]
     Indication: HYPERTENSION

REACTIONS (1)
  - LACRIMATION INCREASED [None]
